FAERS Safety Report 25765505 (Version 1)
Quarter: 2025Q3

REPORT INFORMATION
  Report Type: Spontaneous
  Country: US (occurrence: US)
  Receive Date: 20250905
  Receipt Date: 20250905
  Transmission Date: 20251020
  Serious: No
  Sender: ABBVIE
  Company Number: US-ABBVIE-6442131

PATIENT

DRUGS (2)
  1. INFED [Suspect]
     Active Substance: IRON DEXTRAN
     Indication: Product used for unknown indication
     Route: 065
  2. INFED [Suspect]
     Active Substance: IRON DEXTRAN
     Indication: Product used for unknown indication
     Route: 065

REACTIONS (1)
  - Adverse drug reaction [Unknown]

NARRATIVE: CASE EVENT DATE: 20250821
